FAERS Safety Report 13775126 (Version 4)
Quarter: 2018Q4

REPORT INFORMATION
  Report Type: Report from Study
  Country: US (occurrence: US)
  Receive Date: 20170720
  Receipt Date: 20181220
  Transmission Date: 20190204
  Serious: Yes (Death)
  Sender: FDA-Public Use
  Company Number: PHEH2017US021915

PATIENT
  Sex: Male

DRUGS (1)
  1. AFINITOR [Suspect]
     Active Substance: EVEROLIMUS
     Indication: PRODUCT USED FOR UNKNOWN INDICATION
     Route: 065

REACTIONS (10)
  - Renal disorder [Unknown]
  - Dysgeusia [Unknown]
  - Death [Fatal]
  - Pruritus [Unknown]
  - Erythema [Unknown]
  - Dental caries [Unknown]
  - Skin burning sensation [Unknown]
  - Stomatitis [Unknown]
  - Skin exfoliation [Unknown]
  - Headache [Unknown]
